FAERS Safety Report 13744649 (Version 1)
Quarter: 2017Q3

REPORT INFORMATION
  Report Type: Spontaneous
  Country: US (occurrence: US)
  Receive Date: 20170711
  Receipt Date: 20170711
  Transmission Date: 20171127
  Serious: Yes (Disabling)
  Sender: FDA-Public Use
  Company Number: None

PATIENT
  Age: 44 Year
  Sex: Female
  Weight: 58.5 kg

DRUGS (4)
  1. DIAZEPAM. [Suspect]
     Active Substance: DIAZEPAM
     Indication: MUSCLE SPASMS
     Dosage: ?          QUANTITY:1 TABLET(S); EVERY 8 HOURS?
     Route: 048
     Dates: start: 20110101, end: 20160508
  2. MULTIVITAMIN [Concomitant]
     Active Substance: VITAMINS
  3. VITAMIN B [Concomitant]
     Active Substance: VITAMIN B
  4. FISH OIL [Concomitant]
     Active Substance: FISH OIL

REACTIONS (16)
  - Nausea [None]
  - Palpitations [None]
  - Alopecia [None]
  - Memory impairment [None]
  - Disturbance in attention [None]
  - Insomnia [None]
  - Nail disorder [None]
  - Tinnitus [None]
  - Pain in jaw [None]
  - Hair texture abnormal [None]
  - Abdominal pain upper [None]
  - Paraesthesia [None]
  - Vision blurred [None]
  - Neck pain [None]
  - Contusion [None]
  - Hypoaesthesia [None]

NARRATIVE: CASE EVENT DATE: 20110101
